FAERS Safety Report 5821906-2 (Version None)
Quarter: 2008Q3

REPORT INFORMATION
  Report Type: 
  Country: None (occurrence: None)
  Receive Date: 20080724
  Receipt Date: 20080716
  Transmission Date: 20090109
  Serious: Yes (Hospitalization, Other)
  Sender: FDA-Public Use
  Company Number: US-ELI_LILLY_AND_COMPANY-US200807003366

PATIENT
  Sex: Female

DRUGS (8)
  1. HUMALOG [Suspect]
     Dosage: 30 U, 3/D
  2. TRICOR [Concomitant]
  3. COLCHICINE [Concomitant]
  4. HYDROCHLOROTHIAZIDE [Concomitant]
  5. ATENOLOL [Concomitant]
  6. ALLOPURINOL [Concomitant]
  7. CLONIDINE [Concomitant]
  8. FUROSEMIDE [Concomitant]

REACTIONS (3)
  - BLINDNESS UNILATERAL [None]
  - BLOOD GLUCOSE INCREASED [None]
  - CEREBROVASCULAR ACCIDENT [None]
